FAERS Safety Report 25583448 (Version 2)
Quarter: 2025Q3

REPORT INFORMATION
  Report Type: Spontaneous
  Country: US (occurrence: US)
  Receive Date: 20250721
  Receipt Date: 20250721
  Transmission Date: 20251021
  Serious: Yes (Other)
  Sender: AMGEN
  Company Number: US-AMGEN-USASP2025140130

PATIENT
  Age: 69 Year
  Sex: Male
  Weight: 80 kg

DRUGS (37)
  1. TEPEZZA [Suspect]
     Active Substance: TEPROTUMUMAB-TRBW
     Indication: Endocrine ophthalmopathy
     Dosage: 781 MILLIGRAM, Q3WK, (FIFTH INFUSION, CYCLE 1)
     Route: 040
     Dates: start: 20210806
  2. TEPEZZA [Suspect]
     Active Substance: TEPROTUMUMAB-TRBW
     Indication: Graves^ disease
     Dosage: 1574 MILLIGRAM, Q3WK, (SECOND INFUSION, CYCLE 1)
     Route: 040
     Dates: start: 20210827
  3. TEPEZZA [Suspect]
     Active Substance: TEPROTUMUMAB-TRBW
     Dosage: 1540 MILLIGRAM, Q3WK, (THIRD INFUSION, CYCLE 1)
     Route: 040
     Dates: start: 20210917
  4. TEPEZZA [Suspect]
     Active Substance: TEPROTUMUMAB-TRBW
     Dosage: 1566 MILLIGRAM, Q3WK, (FOURTH INFUSION, CYCLE 1)
     Route: 040
     Dates: start: 20211008
  5. TEPEZZA [Suspect]
     Active Substance: TEPROTUMUMAB-TRBW
     Dosage: 1576 MILLIGRAM, Q3WK, (FIFTH INFUSION, CYCLE 1)
     Route: 040
     Dates: start: 20211029
  6. TEPEZZA [Suspect]
     Active Substance: TEPROTUMUMAB-TRBW
     Dosage: 1574 MILLIGRAM, Q3WK, (SIXTH INFUSION, CYCLE 1)
     Route: 040
     Dates: start: 20211119
  7. TEPEZZA [Suspect]
     Active Substance: TEPROTUMUMAB-TRBW
     Dosage: 1550 MILLIGRAM, Q3WK, (SEVENTH INFUSION, CYCLE 1)
     Route: 040
     Dates: start: 20211210
  8. TEPEZZA [Suspect]
     Active Substance: TEPROTUMUMAB-TRBW
     Dosage: 1500 MILLIGRAM, Q3WK, (EIGHT INFUSION, CYCLE 1)
     Route: 040
     Dates: start: 20211231
  9. PREDNISONE [Suspect]
     Active Substance: PREDNISONE
     Indication: Product used for unknown indication
     Dosage: 20 MILLIGRAM, QD
     Route: 048
  10. ACETAMINOPHEN [Concomitant]
     Active Substance: ACETAMINOPHEN
     Route: 048
  11. DIPHENHYDRAMINE [Concomitant]
     Active Substance: DIPHENHYDRAMINE
     Route: 040
  12. METHYLPREDNISOLONE [Concomitant]
     Active Substance: METHYLPREDNISOLONE
     Route: 040
  13. EPINEPHRINE [Concomitant]
     Active Substance: EPINEPHRINE
     Route: 030
  14. OXYGEN [Concomitant]
     Active Substance: OXYGEN
     Route: 065
  15. ARTIFICIAL TEAR [Concomitant]
     Active Substance: LANOLIN\MINERAL OIL\PETROLATUM
     Dosage: UNK UNK, TID, (1 DROP FOUR TIMES A DAY INTO BOTH EYES)
     Route: 047
  16. LATANOPROST [Concomitant]
     Active Substance: LATANOPROST
     Route: 047
  17. Calcium 600 + D3 plus minerals [Concomitant]
     Route: 065
  18. VITAMINS [Concomitant]
     Active Substance: VITAMINS
     Route: 065
  19. Calcium citrate malate with d3 [Concomitant]
     Route: 065
  20. MAGNESIUM [Concomitant]
     Active Substance: MAGNESIUM
     Route: 065
  21. METHIMAZOLE [Concomitant]
     Active Substance: METHIMAZOLE
     Route: 065
  22. FERROUS SULFATE [Concomitant]
     Active Substance: FERROUS SULFATE
     Route: 065
  23. ALFALFA [Concomitant]
     Active Substance: ALFALFA
     Route: 065
  24. VITAMIN B COMPLEX [Concomitant]
     Active Substance: CYANOCOBALAMIN\DEXPANTHENOL\NIACINAMIDE\PYRIDOXINE HYDROCHLORIDE\RIBOFLAVIN 5^-PHOSPHATE SODIUM\THIA
     Route: 065
  25. ZINC ACETATE [Concomitant]
     Active Substance: ZINC ACETATE
  26. ZINC [Concomitant]
     Active Substance: ZINC
     Dosage: 100 MILLIGRAM, QD
     Route: 048
  27. CURCUMIN [Concomitant]
     Active Substance: CURCUMIN
     Route: 048
  28. THIAMINE [Concomitant]
     Active Substance: THIAMINE
     Route: 065
  29. DIETARY SUPPLEMENT\MINERALS\VITAMINS [Concomitant]
     Active Substance: DIETARY SUPPLEMENT\MINERALS\VITAMINS
     Dosage: UNK UNK, QD
     Route: 048
  30. CALCIUM [Concomitant]
     Active Substance: CALCIUM
     Dosage: 200 MILLIGRAM, QD
     Route: 048
  31. MAGNESIUM LACTATE [Concomitant]
     Active Substance: MAGNESIUM LACTATE
     Dosage: UNK UNK, BID
     Route: 048
  32. LISINOPRIL [Concomitant]
     Active Substance: LISINOPRIL
     Dosage: 5 MILLIGRAM, QD
     Route: 048
  33. IRON [Concomitant]
     Active Substance: IRON
     Dosage: UNK UNK, QD
     Route: 065
  34. HERBALS\TURMERIC [Concomitant]
     Active Substance: HERBALS\TURMERIC
     Dosage: 500 MILLIGRAM, QD
     Route: 048
  35. VIAGRA [Concomitant]
     Active Substance: SILDENAFIL CITRATE
     Route: 048
  36. IVERMECTIN [Concomitant]
     Active Substance: IVERMECTIN
     Dosage: 3 MILLIGRAM, QD
     Route: 048
  37. AZITHROMYCIN [Concomitant]
     Active Substance: AZITHROMYCIN
     Dosage: 500 MILLIGRAM, QD
     Route: 048

REACTIONS (17)
  - Deafness neurosensory [Not Recovered/Not Resolved]
  - Endocrine ophthalmopathy [Unknown]
  - Graves^ disease [Unknown]
  - Pain [Unknown]
  - Emotional distress [Unknown]
  - Anxiety [Unknown]
  - Impaired quality of life [Unknown]
  - Discomfort [Unknown]
  - Tinnitus [Not Recovered/Not Resolved]
  - Therapy non-responder [Unknown]
  - Product use complaint [Unknown]
  - Blood pressure increased [Unknown]
  - Piriformis syndrome [Unknown]
  - White coat hypertension [Unknown]
  - Hyperlipidaemia [Unknown]
  - Thyroid function test abnormal [Unknown]
  - Neurodermatitis [Unknown]
